FAERS Safety Report 8542901-9 (Version None)
Quarter: 2012Q3

REPORT INFORMATION
  Report Type: 
  Country: None (occurrence: None)
  Receive Date: 20120716
  Receipt Date: 20120705
  Transmission Date: 20120928
  Serious: Yes (Hospitalization, Other)
  Sender: FDA-Public Use
  Company Number: ADR-2012-01279

PATIENT
  Age: 8 Year
  Sex: Female

DRUGS (1)
  1. LIORESAL [Suspect]
     Dosage: 385.0 MCG/DAY

REACTIONS (5)
  - OVERDOSE [None]
  - VOMITING [None]
  - SOMNOLENCE [None]
  - MOVEMENT DISORDER [None]
  - INFLUENZA LIKE ILLNESS [None]
